FAERS Safety Report 5599157-9 (Version None)
Quarter: 2008Q1

REPORT INFORMATION
  Report Type: 
  Country: None (occurrence: None)
  Receive Date: 20080122
  Receipt Date: 20080116
  Transmission Date: 20080703
  Serious: Yes (Other)
  Sender: FDA-Public Use
  Company Number: FR-BRISTOL-MYERS SQUIBB COMPANY-14039028

PATIENT
  Age: 71 Year
  Sex: Male

DRUGS (1)
  1. SINEMET [Suspect]
     Indication: PARKINSON'S DISEASE
     Dosage: 1 DOSAGE FORM = 1 TABLETS

REACTIONS (2)
  - DENTAL CARIES [None]
  - TOOTH DISCOLOURATION [None]
